FAERS Safety Report 13592648 (Version 1)
Quarter: 2017Q2

REPORT INFORMATION
  Report Type: Report from Study
  Country: HU (occurrence: HU)
  Receive Date: 20170530
  Receipt Date: 20170530
  Transmission Date: 20170830
  Serious: Yes (Hospitalization)
  Sender: FDA-Public Use
  Company Number: PHHO2011HU06255

PATIENT
  Age: 74 Year
  Sex: Female
  Weight: 50 kg

DRUGS (10)
  1. SYMBICORT [Concomitant]
     Active Substance: BUDESONIDE\FORMOTEROL FUMARATE DIHYDRATE
  2. LCZ696 [Suspect]
     Active Substance: SACUBITRIL\VALSARTAN
     Dosage: 200 MG, BID
     Route: 048
     Dates: start: 20110430, end: 20110528
  3. NEBILET [Suspect]
     Active Substance: NEBIVOLOL
  4. FURON [Suspect]
     Active Substance: FUROSEMIDE
  5. SPIRIVA [Concomitant]
     Active Substance: TIOTROPIUM BROMIDE MONOHYDRATE
  6. SPIRON (SPIRONOLACTONE) [Suspect]
     Active Substance: SPIRONOLACTONE
  7. LCZ696 [Suspect]
     Active Substance: SACUBITRIL\VALSARTAN
     Dosage: 200 MG, BID
     Route: 048
     Dates: start: 20110224, end: 20110329
  8. LCZ696 [Suspect]
     Active Substance: SACUBITRIL\VALSARTAN
     Dosage: NO TREATMENT
     Route: 048
     Dates: start: 20110330, end: 20110426
  9. THEOSPIREX [Concomitant]
     Active Substance: THEOPHYLLINE ANHYDROUS
  10. LCZ696 [Suspect]
     Active Substance: SACUBITRIL\VALSARTAN
     Dosage: 200 MG, BID
     Route: 048
     Dates: start: 20110630

REACTIONS (4)
  - Dehydration [Recovered/Resolved]
  - Bronchitis [Recovered/Resolved]
  - Cardiac failure acute [Recovered/Resolved]
  - Hypotension [Recovered/Resolved]

NARRATIVE: CASE EVENT DATE: 20110329
